FAERS Safety Report 9209338 (Version 1)
Quarter: 2013Q2

REPORT INFORMATION
  Report Type: Spontaneous
  Country: US (occurrence: None)
  Receive Date: 20130403
  Receipt Date: 20130403
  Transmission Date: 20140414
  Serious: Yes (Other)
  Sender: FDA-Public Use
  Company Number: None

PATIENT
  Age: 57 Year
  Sex: Female
  Weight: 61.24 kg

DRUGS (1)
  1. CELEXA [Suspect]
     Indication: ANXIETY
     Dates: start: 20130316

REACTIONS (14)
  - Feeling hot [None]
  - Oropharyngeal discomfort [None]
  - Hypoaesthesia oral [None]
  - Hypoaesthesia oral [None]
  - Hypoaesthesia oral [None]
  - Palpitations [None]
  - Nausea [None]
  - Diarrhoea [None]
  - Chills [None]
  - Tremor [None]
  - Agitation [None]
  - Insomnia [None]
  - Restlessness [None]
  - Feeling abnormal [None]
